FAERS Safety Report 10750705 (Version 2)
Quarter: 2015Q1

REPORT INFORMATION
  Report Type: Spontaneous
  Country: US (occurrence: None)
  Receive Date: 20150128
  Receipt Date: 20150312
  Transmission Date: 20150721
  Serious: Yes (Other)
  Sender: FDA-Public Use
  Company Number: US-ACS-000040

PATIENT
  Age: 74 Year
  Sex: Female

DRUGS (1)
  1. CEFTAZIDIME. [Suspect]
     Active Substance: CEFTAZIDIME
     Indication: URINARY TRACT INFECTION
     Dates: start: 20140912, end: 20140919

REACTIONS (2)
  - Peripheral swelling [None]
  - Hypoaesthesia [None]

NARRATIVE: CASE EVENT DATE: 20140924
